FAERS Safety Report 11718006 (Version 1)
Quarter: 2015Q4

REPORT INFORMATION
  Report Type: Spontaneous
  Country: CZ (occurrence: CZ)
  Receive Date: 20151110
  Receipt Date: 20151110
  Transmission Date: 20160304
  Serious: Yes (Other)
  Sender: FDA-Public Use
  Company Number: CZ-ACCORD-035351

PATIENT
  Age: 53 Year
  Sex: Female

DRUGS (5)
  1. VERAPAMIL [Suspect]
     Active Substance: VERAPAMIL HYDROCHLORIDE
     Indication: RENOVASCULAR HYPERTENSION
  2. IRBESARTAN. [Suspect]
     Active Substance: IRBESARTAN
     Indication: RENOVASCULAR HYPERTENSION
  3. RILMENIDINE/RILMENIDINE PHOSPHATE [Suspect]
     Active Substance: RILMENIDINE
     Indication: RENOVASCULAR HYPERTENSION
  4. AMLODIPINE [Suspect]
     Active Substance: AMLODIPINE BESYLATE
     Indication: RENOVASCULAR HYPERTENSION
  5. BISOPROLOL [Suspect]
     Active Substance: BISOPROLOL
     Indication: RENOVASCULAR HYPERTENSION

REACTIONS (6)
  - Chest discomfort [Unknown]
  - Peripheral swelling [Unknown]
  - Insomnia [Unknown]
  - Cough [Unknown]
  - Microcytic anaemia [Unknown]
  - Dyspnoea [Unknown]
